FAERS Safety Report 6614937-6 (Version None)
Quarter: 2010Q1

REPORT INFORMATION
  Report Type: 
  Country: None (occurrence: None)
  Receive Date: 20100305
  Receipt Date: 20100115
  Transmission Date: 20100710
  Serious: Yes (Hospitalization)
  Sender: FDA-Public Use
  Company Number: JP-JNJFOC-20091106978

PATIENT
  Sex: Male

DRUGS (2)
  1. CRAVIT [Suspect]
     Indication: NASOPHARYNGITIS
     Route: 048
     Dates: start: 20091029, end: 20091102
  2. PL GRANULE [Interacting]
     Indication: NASOPHARYNGITIS
     Route: 048
     Dates: start: 20091029, end: 20091102

REACTIONS (2)
  - DRUG INTERACTION [None]
  - LIVER DISORDER [None]
